FAERS Safety Report 21878919 (Version 1)
Quarter: 2023Q1

REPORT INFORMATION
  Report Type: Spontaneous
  Country: US (occurrence: US)
  Receive Date: 20230118
  Receipt Date: 20230118
  Transmission Date: 20230418
  Serious: No
  Sender: FDA-Public Use
  Company Number: US-SA-SAC20230117000638

PATIENT
  Age: 1 Year
  Sex: Male

DRUGS (2)
  1. ELOCTATE [Suspect]
     Active Substance: EFMOROCTOCOG ALFA
     Indication: Factor VIII deficiency
     Dosage: 500 U, PRN
     Route: 042
     Dates: start: 20220111
  2. ELOCTATE [Suspect]
     Active Substance: EFMOROCTOCOG ALFA
     Indication: Factor VIII deficiency
     Dosage: 500 U, PRN
     Route: 042
     Dates: start: 20220111

REACTIONS (2)
  - Synovitis [Unknown]
  - Arthritis [Unknown]

NARRATIVE: CASE EVENT DATE: 20221220
